FAERS Safety Report 23970605 (Version 1)
Quarter: 2024Q2

REPORT INFORMATION
  Report Type: Spontaneous
  Country: CA (occurrence: CA)
  Receive Date: 20240613
  Receipt Date: 20240613
  Transmission Date: 20240716
  Serious: Yes (Other)
  Sender: FDA-Public Use
  Company Number: CA-BAXTER-2022BAX024246

PATIENT
  Age: 58 Year
  Sex: Female
  Weight: 123 kg

DRUGS (3)
  1. CEFTRIAXONE [Suspect]
     Active Substance: CEFTRIAXONE\CEFTRIAXONE SODIUM
     Indication: Product used for unknown indication
     Dosage: UNK
     Route: 065
  2. Birch buds [Concomitant]
     Dosage: UNK
     Route: 065
  3. IMATINIB [Concomitant]
     Active Substance: IMATINIB
     Dosage: (DOSAGE FORM: NOT SPECIFIED), UNSPECIFIED FREQUENCY AND FREQUENCY
     Route: 065

REACTIONS (4)
  - Body surface area decreased [Unknown]
  - Hyperhidrosis [Unknown]
  - Weight decreased [Unknown]
  - Anaphylactic reaction [Unknown]
